FAERS Safety Report 4403686-0 (Version None)
Quarter: 2004Q3

REPORT INFORMATION
  Report Type: 
  Country: None (occurrence: None)
  Receive Date: 20040719
  Receipt Date: 20040707
  Transmission Date: 20050211
  Serious: Yes (Death)
  Sender: FDA-Public Use
  Company Number: 2004IM000744

PATIENT
  Age: 11 Year
  Sex: Male

DRUGS (1)
  1. ACTIMMUNE [Suspect]
     Indication: PYOGENIC GRANULOMA
     Dosage: 40 UG;TIW;SUBCUTANEOUS
     Route: 058
     Dates: start: 20020916, end: 20040510

REACTIONS (1)
  - DEATH [None]
